FAERS Safety Report 8341394-4 (Version None)
Quarter: 2012Q2

REPORT INFORMATION
  Report Type: 
  Country: None (occurrence: None)
  Receive Date: 20120507
  Receipt Date: 20120502
  Transmission Date: 20120825
  Serious: Yes (Hospitalization)
  Sender: FDA-Public Use
  Company Number: IT-PFIZER INC-2012108389

PATIENT
  Age: 5 Year
  Sex: Female

DRUGS (5)
  1. ZOFRAN [Concomitant]
  2. DOXORUBICIN HYDROCHLORIDE [Suspect]
     Indication: ACUTE LYMPHOCYTIC LEUKAEMIA
     Dosage: 21 MG, CYCLIC
     Dates: start: 20120209
  3. DECADRON [Concomitant]
  4. VINCRISTINE SULFATE [Suspect]
     Indication: ACUTE LYMPHOCYTIC LEUKAEMIA
     Dosage: 1 MG, CYCLIC
     Dates: start: 20120209
  5. BACTRIM [Concomitant]

REACTIONS (1)
  - FEBRILE BONE MARROW APLASIA [None]
